FAERS Safety Report 9937826 (Version 1)
Quarter: 2014Q1

REPORT INFORMATION
  Report Type: Spontaneous
  Country: US (occurrence: US)
  Receive Date: 20140303
  Receipt Date: 20140303
  Transmission Date: 20141002
  Serious: No
  Sender: FDA-Public Use
  Company Number: US-BIOGENIDEC-2014BI016273

PATIENT
  Age: 60 Year
  Sex: Female
  Weight: 86 kg

DRUGS (6)
  1. TECFIDERA [Suspect]
     Indication: PRODUCT USED FOR UNKNOWN INDICATION
  2. LOVASTATIN [Concomitant]
     Indication: PRODUCT USED FOR UNKNOWN INDICATION
     Route: 048
  3. METFORMIN [Concomitant]
     Indication: PRODUCT USED FOR UNKNOWN INDICATION
     Route: 048
  4. VICTOZA [Concomitant]
     Indication: PRODUCT USED FOR UNKNOWN INDICATION
  5. LEVOTHYROXIN [Concomitant]
     Indication: PRODUCT USED FOR UNKNOWN INDICATION
     Route: 048
  6. MICARDIS HCT [Concomitant]
     Indication: PRODUCT USED FOR UNKNOWN INDICATION
     Route: 048

REACTIONS (2)
  - Muscle spasms [Unknown]
  - Musculoskeletal disorder [Unknown]
